FAERS Safety Report 5106328-4 (Version None)
Quarter: 2006Q3

REPORT INFORMATION
  Report Type: 
  Country: None (occurrence: None)
  Receive Date: 20060912
  Receipt Date: 20060830
  Transmission Date: 20061208
  Serious: Yes (Hospitalization)
  Sender: FDA-Public Use
  Company Number: 2006105728

PATIENT
  Age: 73 Year
  Sex: Male
  Weight: 67.9 kg

DRUGS (11)
  1. SUTENT [Suspect]
     Indication: METASTATIC RENAL CELL CARCINOMA
     Dosage: 37.5 MG (37.5 MG, DAILY - INTERVAL: CYCLIC); ORAL
     Route: 048
     Dates: start: 20060623
  2. FENTANYL [Concomitant]
  3. CIPRALEX (ESCITALOPRAM) [Concomitant]
  4. DICLOFENAC SODIUM [Concomitant]
  5. PARACETAMOL [Concomitant]
  6. PAMIDRONATE DISODIUM [Concomitant]
  7. LANSOPRAZOLE [Concomitant]
  8. CORSODYL (CHLORHEXIDINE GLUCONATE) [Concomitant]
  9. NYSTATIN [Concomitant]
  10. LACTULOSE [Concomitant]
  11. CO-DANTHRAMER (DANTRON, POLOXAMER) [Concomitant]

REACTIONS (5)
  - BALANCE DISORDER [None]
  - CONFUSIONAL STATE [None]
  - FALL [None]
  - HALLUCINATION [None]
  - STOMATITIS [None]
